FAERS Safety Report 4304316-9 (Version None)
Quarter: 2004Q1

REPORT INFORMATION
  Report Type: 
  Country: None (occurrence: None)
  Receive Date: 20040224
  Receipt Date: 20040210
  Transmission Date: 20041129
  Serious: Yes (Other)
  Sender: FDA-Public Use
  Company Number: NSADSS2003016223

PATIENT
  Age: 25 Year
  Sex: Female
  Weight: 63.5036 kg

DRUGS (11)
  1. REMICADE [Suspect]
     Indication: RHEUMATOID ARTHRITIS
     Dosage: 1 IN 1 DAY, INTRAVENOUS DRIP; INTRAVENOUS DRIP
     Route: 041
     Dates: start: 20001204
  2. REMICADE [Suspect]
     Indication: RHEUMATOID ARTHRITIS
     Dosage: 1 IN 1 DAY, INTRAVENOUS DRIP; INTRAVENOUS DRIP
     Route: 041
     Dates: start: 20001218
  3. REMICADE [Suspect]
     Indication: RHEUMATOID ARTHRITIS
     Dosage: 1 IN 1 DAY, INTRAVENOUS DRIP; INTRAVENOUS DRIP
     Route: 041
     Dates: start: 20010402
  4. REMICADE [Suspect]
     Indication: RHEUMATOID ARTHRITIS
     Dosage: 1 IN 1 DAY, INTRAVENOUS DRIP; INTRAVENOUS DRIP
     Route: 041
     Dates: start: 20010530
  5. REMICADE [Suspect]
     Indication: RHEUMATOID ARTHRITIS
     Dosage: 1 IN 1 DAY, INTRAVENOUS DRIP; INTRAVENOUS DRIP
     Route: 041
     Dates: start: 20010613
  6. METHOTREXATE [Concomitant]
  7. ULTRAM [Concomitant]
  8. FOLIC ACID [Concomitant]
  9. FLEXERIL [Concomitant]
  10. NAPROXEN [Concomitant]
  11. MEDROL DOSEPAK (METHYLPREDNISOLONE) [Concomitant]

REACTIONS (31)
  - ABASIA [None]
  - ADRENAL INSUFFICIENCY [None]
  - BACK PAIN [None]
  - CERVICAL CORD COMPRESSION [None]
  - CERVICAL SPINAL STENOSIS [None]
  - CONFUSIONAL STATE [None]
  - DYSPNOEA [None]
  - EAR INFECTION [None]
  - FEELING HOT [None]
  - FLUSHING [None]
  - HEADACHE [None]
  - HYPOAESTHESIA [None]
  - INFUSION RELATED REACTION [None]
  - LUPUS-LIKE SYNDROME [None]
  - MUSCLE SPASMS [None]
  - MYELITIS [None]
  - MYELOPATHY [None]
  - NAUSEA [None]
  - PAIN [None]
  - PARAESTHESIA [None]
  - QUADRIPARESIS [None]
  - RED BLOOD CELL SEDIMENTATION RATE INCREASED [None]
  - SCOLIOSIS [None]
  - SINUSITIS [None]
  - SLEEP DISORDER [None]
  - SPINAL CORD INJURY CERVICAL [None]
  - SPINAL CORD INJURY THORACIC [None]
  - SYRINGOMYELIA [None]
  - TACHYCARDIA [None]
  - URINARY INCONTINENCE [None]
  - VOMITING [None]
